FAERS Safety Report 25416143 (Version 2)
Quarter: 2025Q2

REPORT INFORMATION
  Report Type: Spontaneous
  Country: US (occurrence: US)
  Receive Date: 20250610
  Receipt Date: 20250623
  Transmission Date: 20250717
  Serious: Yes (Other)
  Sender: TEVA
  Company Number: US-TEVA-VS-3337962

PATIENT
  Age: 77 Year
  Sex: Male

DRUGS (10)
  1. LAMOTRIGINE [Interacting]
     Active Substance: LAMOTRIGINE
     Indication: Bipolar disorder
     Route: 065
  2. ESKETAMINE [Interacting]
     Active Substance: ESKETAMINE
     Indication: Bipolar disorder
     Route: 065
  3. ESKETAMINE [Interacting]
     Active Substance: ESKETAMINE
     Indication: Bipolar disorder
     Route: 065
  4. MODAFINIL [Concomitant]
     Active Substance: MODAFINIL
     Indication: Bipolar disorder
     Route: 065
  5. MIRTAZAPINE [Concomitant]
     Active Substance: MIRTAZAPINE
     Indication: Bipolar disorder
     Dosage: AT NIGHT
     Route: 065
  6. CARIPRAZINE [Concomitant]
     Active Substance: CARIPRAZINE
     Indication: Bipolar disorder
     Dosage: AT NIGHT
     Route: 065
  7. BUPROPION [Concomitant]
     Active Substance: BUPROPION
     Indication: Bipolar disorder
     Route: 065
  8. VORTIOXETINE [Concomitant]
     Active Substance: VORTIOXETINE
     Indication: Bipolar disorder
  9. AUVELITY [Concomitant]
     Active Substance: BUPROPION HYDROCHLORIDE\DEXTROMETHORPHAN HYDROBROMIDE
     Indication: Bipolar disorder
  10. DEXTROMETHORPHAN [Concomitant]
     Active Substance: DEXTROMETHORPHAN
     Indication: Bipolar disorder

REACTIONS (2)
  - Depressive symptom [Recovered/Resolved]
  - Drug interaction [Unknown]
